FAERS Safety Report 4309232-4 (Version None)
Quarter: 2004Q1

REPORT INFORMATION
  Report Type: 
  Country: None (occurrence: None)
  Receive Date: 20040301
  Receipt Date: 20040219
  Transmission Date: 20041129
  Serious: Yes (Hospitalization)
  Sender: FDA-Public Use
  Company Number: JP-JNJFOC-20040204073

PATIENT
  Age: 61 Year
  Sex: Male

DRUGS (12)
  1. OFLOXACIN [Suspect]
     Indication: PERITONITIS
     Dosage: 200 MG, 1 IN 1 DAY, ORAL
     Route: 048
     Dates: start: 20031125, end: 20031203
  2. CEFTAZIDIME PENTAHYDRATE [Suspect]
     Dosage: 1 G, INTRAPERITONEAL
     Route: 033
     Dates: start: 20031125, end: 20031203
  3. GENTAMICIN [Suspect]
     Dosage: 25 G INTRAVENOUS
     Route: 042
     Dates: start: 20031125, end: 20031206
  4. VANCOMYCIN [Concomitant]
  5. PROGRAF [Concomitant]
  6. MEDROL [Concomitant]
  7. METOPROLOL TARTRATE [Concomitant]
  8. LASIX [Concomitant]
  9. KARDEGIC (ACETYLSALICYLATE LYSINE) [Concomitant]
  10. EUCALCIC (CALCIUM CARBONATE) [Concomitant]
  11. DIFFU K  (POTASSIUM CHOLRIDE) [Concomitant]
  12. FOSAMAX [Concomitant]

REACTIONS (5)
  - ATHEROSCLEROSIS [None]
  - CEREBRAL ISCHAEMIA [None]
  - CONVULSION [None]
  - DELIRIUM [None]
  - MEMORY IMPAIRMENT [None]
